FAERS Safety Report 19173415 (Version 2)
Quarter: 2021Q2

REPORT INFORMATION
  Report Type: Spontaneous
  Country: CH (occurrence: CH)
  Receive Date: 20210423
  Receipt Date: 20210520
  Transmission Date: 20210717
  Serious: Yes (Other)
  Sender: FDA-Public Use
  Company Number: CH-ACCORD-223394

PATIENT
  Age: 47 Year
  Sex: Male

DRUGS (2)
  1. ROPINIROLE/ROPINIROLE HYDROCHLORIDE [Suspect]
     Active Substance: ROPINIROLE HYDROCHLORIDE
     Indication: PARKINSON^S DISEASE
  2. LEVODOPA [Concomitant]
     Active Substance: LEVODOPA
     Indication: PARKINSON^S DISEASE

REACTIONS (5)
  - Hypomania [Recovering/Resolving]
  - Hypersexuality [Recovering/Resolving]
  - Abnormal behaviour [Recovering/Resolving]
  - Binge eating [Recovering/Resolving]
  - Impulse-control disorder [Recovering/Resolving]
